FAERS Safety Report 4634043-X (Version None)
Quarter: 2005Q2

REPORT INFORMATION
  Report Type: 
  Country: None (occurrence: None)
  Receive Date: 20050413
  Receipt Date: 20050405
  Transmission Date: 20051028
  Serious: Yes (Death)
  Sender: FDA-Public Use
  Company Number: US-JNJFOC-20040600990

PATIENT
  Sex: Female
  Weight: 96.62 kg

DRUGS (3)
  1. DURAGESIC-100 [Suspect]
     Route: 062
     Dates: start: 20040226, end: 20040410
  2. DURAGESIC-100 [Suspect]
     Route: 062
     Dates: start: 20040226, end: 20040410
  3. DURAGESIC-100 [Suspect]
     Indication: CANCER PAIN
     Route: 062
     Dates: start: 20040226, end: 20040410

REACTIONS (4)
  - BRAIN NEOPLASM MALIGNANT [None]
  - CERVIX CARCINOMA [None]
  - LUNG CANCER METASTATIC [None]
  - MALIGNANT NEOPLASM PROGRESSION [None]
